FAERS Safety Report 4929533-6 (Version None)
Quarter: 2006Q1

REPORT INFORMATION
  Report Type: 
  Country: None (occurrence: None)
  Receive Date: 20060224
  Receipt Date: 20060215
  Transmission Date: 20060701
  Serious: Yes (Life-Threatening, Other)
  Sender: FDA-Public Use
  Company Number: 2006BH003358

PATIENT
  Age: 82 Year
  Sex: Male
  Weight: 60 kg

DRUGS (6)
  1. GENTAMICIN [Suspect]
     Indication: URETEROSCOPY
     Dosage: 120 MG;ONCE;IV
     Route: 042
     Dates: start: 20050307, end: 20050307
  2. PRIADEL [Concomitant]
  3. CITALOPRAM [Concomitant]
  4. LIGNOCAINE [Concomitant]
  5. ONDANSETRON [Concomitant]
  6. PROPOFOL [Concomitant]

REACTIONS (4)
  - ANAPHYLACTIC REACTION [None]
  - CAPILLARY DISORDER [None]
  - ERYTHEMA [None]
  - HYPOTENSION [None]
